FAERS Safety Report 22314135 (Version 1)
Quarter: 2023Q2

REPORT INFORMATION
  Report Type: Spontaneous
  Country: US (occurrence: US)
  Receive Date: 20230512
  Receipt Date: 20230512
  Transmission Date: 20230722
  Serious: No
  Sender: FDA-Public Use
  Company Number: US-SA-SAC20230511000546

PATIENT
  Sex: Male

DRUGS (1)
  1. DUPIXENT [Suspect]
     Active Substance: DUPILUMAB
     Indication: Respiratory disorder
     Dosage: 300 MG, QOW
     Route: 058

REACTIONS (2)
  - Oral herpes [Unknown]
  - Product use in unapproved indication [Unknown]
